FAERS Safety Report 7880739-6 (Version None)
Quarter: 2011Q4

REPORT INFORMATION
  Report Type: 
  Country: None (occurrence: None)
  Receive Date: 20111101
  Receipt Date: 20111019
  Transmission Date: 20120403
  Serious: Yes (Other)
  Sender: FDA-Public Use
  Company Number: CA-ELI_LILLY_AND_COMPANY-CA201110004858

PATIENT
  Sex: Female

DRUGS (9)
  1. ZYPREXA [Suspect]
     Indication: SCHIZOPHRENIA
     Dosage: 15 MG, EACH EVENING
     Route: 048
  2. PIMOZIDE [Concomitant]
  3. CARBAMAZEPINE [Concomitant]
  4. WARFARIN [Concomitant]
  5. ZYPREXA [Suspect]
     Dosage: 20 MG, EACH EVENING
     Route: 048
     Dates: start: 20060501
  6. LORAZEPAM [Concomitant]
  7. CLONAZEPAM [Concomitant]
  8. VITAMIN B-12 [Concomitant]
  9. PROCYCLIDINE HYDROCHLORIDE 2MG TAB [Concomitant]

REACTIONS (7)
  - PLATELET COUNT INCREASED [None]
  - HYPERGLYCAEMIA [None]
  - BLOOD TRIGLYCERIDES INCREASED [None]
  - URINARY TRACT INFECTION [None]
  - EPILEPSY [None]
  - BLOOD CHOLESTEROL INCREASED [None]
  - GAMMA-GLUTAMYLTRANSFERASE INCREASED [None]
